FAERS Safety Report 4910451-4 (Version None)
Quarter: 2006Q1

REPORT INFORMATION
  Report Type: 
  Country: None (occurrence: None)
  Receive Date: 20060209
  Receipt Date: 20060127
  Transmission Date: 20060701
  Serious: Yes (Life-Threatening, Hospitalization, Other)
  Sender: FDA-Public Use
  Company Number: 2006015237

PATIENT
  Sex: Female

DRUGS (2)
  1. DEPO-PROVERA [Suspect]
     Indication: CONTRACEPTION
     Dosage: 150 MG (150 MG, MOST RECENT INJECTION), INTRAMUSCULAR
     Route: 030
     Dates: start: 20060127, end: 20060127
  2. DEPO-PROVERA [Suspect]
     Indication: MENORRHAGIA
     Dosage: 150 MG (150 MG, MOST RECENT INJECTION), INTRAMUSCULAR
     Route: 030
     Dates: start: 20060127, end: 20060127

REACTIONS (9)
  - CAESAREAN SECTION [None]
  - CHOLECYSTECTOMY [None]
  - DRUG EXPOSURE DURING PREGNANCY [None]
  - DYSPNOEA [None]
  - MENORRHAGIA [None]
  - PRURITUS [None]
  - RASH MACULAR [None]
  - UNINTENDED PREGNANCY [None]
  - URTICARIA [None]
